FAERS Safety Report 8428063-7 (Version None)
Quarter: 2012Q2

REPORT INFORMATION
  Report Type: 
  Country: None (occurrence: None)
  Receive Date: 20120611
  Receipt Date: 20120605
  Transmission Date: 20120825
  Serious: Yes (Life-Threatening, Hospitalization)
  Sender: FDA-Public Use
  Company Number: FR-ASTRAZENECA-2012SE37840

PATIENT
  Age: 57 Year
  Sex: Male

DRUGS (10)
  1. BISOPROLOL FUMARATE [Concomitant]
  2. GENTAMICIN [Concomitant]
  3. CRESTOR [Suspect]
     Route: 048
     Dates: end: 20120404
  4. DURAGESIC-100 [Concomitant]
  5. CUBICIN [Suspect]
     Indication: ENDOCARDITIS STAPHYLOCOCCAL
     Route: 042
     Dates: start: 20120323, end: 20120404
  6. NEXIUM [Concomitant]
  7. ASPIRIN [Concomitant]
  8. CUBICIN [Suspect]
     Indication: VASCULAR GRAFT
     Route: 042
     Dates: start: 20120323, end: 20120404
  9. ZOLPIDEM [Concomitant]
  10. ZYVOX [Concomitant]

REACTIONS (2)
  - ENDOCARDITIS STAPHYLOCOCCAL [None]
  - RHABDOMYOLYSIS [None]
